FAERS Safety Report 25265651 (Version 4)
Quarter: 2025Q2

REPORT INFORMATION
  Report Type: Spontaneous
  Country: US (occurrence: US)
  Receive Date: 20250503
  Receipt Date: 20250612
  Transmission Date: 20250717
  Serious: Yes (Death, Hospitalization, Other)
  Sender: UNITED THERAPEUTICS
  Company Number: US-UNITED THERAPEUTICS-UNT-2025-013702

PATIENT
  Age: 68 Year
  Sex: Female
  Weight: 58.503 kg

DRUGS (14)
  1. TYVASO [Suspect]
     Active Substance: TREPROSTINIL
     Indication: Pulmonary hypertension
     Dosage: 54 ?G, QID
  2. TYVASO [Suspect]
     Active Substance: TREPROSTINIL
     Indication: Lung disorder
     Dosage: 36 ?G, QID
  3. TYVASO [Suspect]
     Active Substance: TREPROSTINIL
     Indication: Hypoxia
     Dosage: 18 ?G, QID
  4. TYVASO [Suspect]
     Active Substance: TREPROSTINIL
     Dosage: 36 ?G, QID
  5. TYVASO [Suspect]
     Active Substance: TREPROSTINIL
  6. ROSUVASTATIN CALCIUM [Concomitant]
     Active Substance: ROSUVASTATIN CALCIUM
     Indication: Product used for unknown indication
  7. VITAMIN D3 [Concomitant]
     Active Substance: CHOLECALCIFEROL
     Indication: Product used for unknown indication
  8. CLOPIDOGREL [Concomitant]
     Active Substance: CLOPIDOGREL BISULFATE
     Indication: Product used for unknown indication
  9. VITAMIN D2 [Concomitant]
     Active Substance: ERGOCALCIFEROL
     Indication: Product used for unknown indication
  10. METOPROLOL SUCCINATE [Concomitant]
     Active Substance: METOPROLOL SUCCINATE
     Indication: Product used for unknown indication
  11. SOTATERCEPT [Concomitant]
     Active Substance: SOTATERCEPT
     Indication: Product used for unknown indication
  12. OXYGEN [Concomitant]
     Active Substance: OXYGEN
     Indication: Product used for unknown indication
  13. GABAPENTIN [Concomitant]
     Active Substance: GABAPENTIN
     Indication: Product used for unknown indication
  14. ASPIRIN [Concomitant]
     Active Substance: ASPIRIN
     Indication: Product used for unknown indication

REACTIONS (7)
  - Death [Fatal]
  - Bacteraemia [Unknown]
  - Endocarditis bacterial [Recovering/Resolving]
  - Obstruction [Unknown]
  - Hypoxia [Unknown]
  - Lung disorder [Unknown]
  - Off label use [Unknown]

NARRATIVE: CASE EVENT DATE: 20240919
